FAERS Safety Report 14998223 (Version 3)
Quarter: 2018Q4

REPORT INFORMATION
  Report Type: Spontaneous
  Country: AT (occurrence: AT)
  Receive Date: 20180611
  Receipt Date: 20181012
  Transmission Date: 20190204
  Serious: Yes (Death)
  Sender: FDA-Public Use
  Company Number: PHHY2018AT018908

PATIENT
  Age: 44 Year
  Sex: Female
  Weight: 60 kg

DRUGS (2)
  1. TAFINLAR [Suspect]
     Active Substance: DABRAFENIB MESYLATE
     Indication: PLASMA CELL MYELOMA
     Dosage: 150 MG, BID
     Route: 048
     Dates: start: 20180519, end: 20180530
  2. MEKINIST [Suspect]
     Active Substance: TRAMETINIB DIMETHYL SULFOXIDE
     Indication: PLASMA CELL MYELOMA
     Dosage: 1 DF, QD
     Route: 048
     Dates: start: 20180519, end: 20180530

REACTIONS (13)
  - Blood sodium decreased [Unknown]
  - Plasma cell leukaemia [Fatal]
  - Red blood cell count decreased [Unknown]
  - Product use in unapproved indication [Unknown]
  - Oedema [Unknown]
  - Lymphocyte count decreased [Unknown]
  - Haemoglobin decreased [Unknown]
  - Malignant neoplasm progression [Fatal]
  - White blood cell count increased [Unknown]
  - Acute kidney injury [Fatal]
  - Plasma cell myeloma [Fatal]
  - Haematocrit decreased [Unknown]
  - Platelet count decreased [Unknown]

NARRATIVE: CASE EVENT DATE: 20180519
